FAERS Safety Report 5498534-4 (Version None)
Quarter: 2007Q4

REPORT INFORMATION
  Report Type: 
  Country: None (occurrence: None)
  Receive Date: 20071026
  Receipt Date: 20071018
  Transmission Date: 20080405
  Serious: Yes (Hospitalization, Other)
  Sender: FDA-Public Use
  Company Number: PHNR2007AU01490

PATIENT
  Age: 67 Year

DRUGS (2)
  1. EXJADE [Suspect]
     Indication: MYELOFIBROSIS
     Dosage: 1500MG/DAY
     Dates: start: 20070401
  2. NEXIUM [Concomitant]

REACTIONS (1)
  - HAEMOGLOBIN DECREASED [None]
